FAERS Safety Report 16912940 (Version 1)
Quarter: 2019Q4

REPORT INFORMATION
  Report Type: Spontaneous
  Country: US (occurrence: US)
  Receive Date: 20191014
  Receipt Date: 20191014
  Transmission Date: 20200122
  Serious: No
  Sender: FDA-Public Use
  Company Number: US-AUROBINDO-AUR-APL-2019-062066

PATIENT
  Age: 87 Year
  Sex: Female

DRUGS (2)
  1. LORAZEPAM TABLETS USP 0.5 MG [Suspect]
     Active Substance: LORAZEPAM
     Indication: HYPOTHYROIDISM
     Dosage: 0.25 MILLIGRAM, IN MORNING
     Route: 065
     Dates: start: 20190824, end: 20190917
  2. LORAZEPAM TABLETS USP 0.5 MG [Suspect]
     Active Substance: LORAZEPAM
     Dosage: 0.5 MILLIGRAM, IN EVENING
     Route: 065
     Dates: start: 20190824, end: 20190917

REACTIONS (2)
  - Off label use [Unknown]
  - Wrong technique in product usage process [Unknown]
